FAERS Safety Report 9485268 (Version 3)
Quarter: 2014Q1

REPORT INFORMATION
  Report Type: Spontaneous
  Country: FR (occurrence: FR)
  Receive Date: 20130828
  Receipt Date: 20140107
  Transmission Date: 20141002
  Serious: Yes (Life-Threatening)
  Sender: FDA-Public Use
  Company Number: FR-BAXTER-2013BAX032806

PATIENT
  Age: 45 Year
  Sex: Male

DRUGS (17)
  1. ENDOXAN 50 MG, COMPRIM? ENROB? [Suspect]
     Indication: MONOCLONAL GAMMOPATHY
     Route: 048
     Dates: start: 20121228, end: 20130610
  2. VELCADE [Suspect]
     Indication: MONOCLONAL GAMMOPATHY
     Route: 058
     Dates: start: 20121228, end: 20130610
  3. RITUXIMAB [Concomitant]
     Indication: PRODUCT USED FOR UNKNOWN INDICATION
     Route: 065
     Dates: start: 201106, end: 201206
  4. CEFOTAXIME [Concomitant]
     Indication: PRODUCT USED FOR UNKNOWN INDICATION
     Route: 065
  5. DEXAMETHASONE [Concomitant]
     Indication: PRODUCT USED FOR UNKNOWN INDICATION
     Route: 065
     Dates: start: 20121228, end: 20130610
  6. DEXAMETHASONE [Concomitant]
     Indication: CHEMOTHERAPY
     Route: 065
  7. AUGMENTIN [Concomitant]
     Indication: PYREXIA
     Route: 065
     Dates: start: 201306, end: 201306
  8. LYRICA [Concomitant]
     Indication: PRODUCT USED FOR UNKNOWN INDICATION
     Route: 065
  9. ZELITREX [Concomitant]
     Indication: PRODUCT USED FOR UNKNOWN INDICATION
     Route: 065
  10. INEXIUM [Concomitant]
     Indication: PRODUCT USED FOR UNKNOWN INDICATION
     Route: 065
  11. AMLOR [Concomitant]
     Indication: PRODUCT USED FOR UNKNOWN INDICATION
     Route: 065
  12. RAMIPRIL [Concomitant]
     Indication: PRODUCT USED FOR UNKNOWN INDICATION
     Route: 065
  13. PHOSPHOSORB [Concomitant]
     Indication: PRODUCT USED FOR UNKNOWN INDICATION
     Dosage: 2 TABLETS
     Route: 048
  14. SODIUM BICARBONATE [Concomitant]
     Indication: PRODUCT USED FOR UNKNOWN INDICATION
     Route: 065
  15. CORTANCYL [Concomitant]
     Indication: PRODUCT USED FOR UNKNOWN INDICATION
     Route: 065
  16. COUMADINE [Concomitant]
     Indication: PRODUCT USED FOR UNKNOWN INDICATION
     Dosage: GOAL 3.5{INR{4.5 DAILY
     Route: 065
  17. BACTRIM FORTE [Concomitant]
     Indication: PRODUCT USED FOR UNKNOWN INDICATION
     Route: 048

REACTIONS (1)
  - Congestive cardiomyopathy [Recovered/Resolved with Sequelae]
